FAERS Safety Report 15286347 (Version 4)
Quarter: 2018Q3

REPORT INFORMATION
  Report Type: Spontaneous
  Country: AT (occurrence: AT)
  Receive Date: 20180816
  Receipt Date: 20180906
  Transmission Date: 20181010
  Serious: Yes (Death, Hospitalization, Other)
  Sender: FDA-Public Use
  Company Number: AT-PFIZER INC-2018328610

PATIENT
  Age: 57 Year
  Sex: Male
  Weight: 52 kg

DRUGS (15)
  1. URBASON [Concomitant]
     Active Substance: METHYLPREDNISOLONE
     Dosage: 2 MG AND 1 MG ALTERNATING
  2. PARIET [Concomitant]
     Active Substance: RABEPRAZOLE SODIUM
     Dosage: 10 MG, DAILY (1?0?0)
  3. DREISAVIT [ASCORBIC ACID;BIOTIN;CALCIUM PANTOTHENATE;FOLIC ACID;NICOTI [Concomitant]
     Dosage: AFTER DIALYSIS
  4. FERMED [SACCHARATED IRON OXIDE] [Concomitant]
     Dosage: 60 MG, WEEKLY AT DIALYSIS
  5. SPIRONO [Concomitant]
     Dosage: 50 G, DAILY (0?1?0) ON DIALYSIS?DAYS, PAUSED THE LAST 4 DAYS
  6. HYDAL [Concomitant]
     Active Substance: HYDROMORPHONE HYDROCHLORIDE
     Dosage: 6 MG, DAILY (4?0?2)
  7. CONCOR [Concomitant]
     Active Substance: BISOPROLOL FUMARATE
     Dosage: 0.5?0?0.5, PAUSED THE LAST 4 DAYS
  8. LAXOGOL [Concomitant]
     Dosage: (1?0?0) PAUSED
  9. ARANESP [Concomitant]
     Active Substance: DARBEPOETIN ALFA
     Dosage: 40 UG, WEEKLY, AT DIALYSIS
  10. FOLSAN [Concomitant]
     Active Substance: FOLIC ACID
     Dosage: 5 MG, WEEKLY, AT DIALYSIS
  11. SEVELAMERCARBONAT AL [Concomitant]
     Dosage: 4800 MG, DAILY (800MG 2?2?2)
  12. XELJANZ [Suspect]
     Active Substance: TOFACITINIB CITRATE
     Indication: RHEUMATOID ARTHRITIS
     Dosage: 5 MG, 1X/DAY
     Dates: start: 20180523
  13. RENILON [Concomitant]
     Dosage: (1?0?0) NUTRITIAL
  14. ACEMIN [LISINOPRIL] [Concomitant]
     Dosage: 20 MG, DAILY (0.5?0?0.5) PAUSED THE LAST 4 DAYS
  15. LASIX [Concomitant]
     Active Substance: FUROSEMIDE
     Dosage: 80 MG, DAILY (1?0?0), PAUSED THE LAST 4 DAYS

REACTIONS (7)
  - Multiple organ dysfunction syndrome [Fatal]
  - Disseminated intravascular coagulation [Fatal]
  - Sepsis [Fatal]
  - Peritonitis [Fatal]
  - CT hypotension complex [Fatal]
  - Large intestine perforation [Fatal]
  - Acute hepatic failure [Fatal]

NARRATIVE: CASE EVENT DATE: 20180810
